FAERS Safety Report 11840226 (Version 2)
Quarter: 2016Q1

REPORT INFORMATION
  Report Type: Spontaneous
  Country: US (occurrence: US)
  Receive Date: 20151216
  Receipt Date: 20160305
  Transmission Date: 20160525
  Serious: Yes (Death, Other)
  Sender: FDA-Public Use
  Company Number: US-BRISTOL-MYERS SQUIBB COMPANY-BMS-2015-086808

PATIENT
  Sex: Female

DRUGS (1)
  1. OPDIVO [Suspect]
     Active Substance: NIVOLUMAB
     Indication: CHORDOMA
     Dosage: 170 MG, UNK
     Route: 042
     Dates: start: 20151118, end: 20151118

REACTIONS (2)
  - Off label use [Unknown]
  - Malignant neoplasm progression [Fatal]
